FAERS Safety Report 4784277-9 (Version None)
Quarter: 2005Q3

REPORT INFORMATION
  Report Type: 
  Country: None (occurrence: None)
  Receive Date: 20050930
  Receipt Date: 20050404
  Transmission Date: 20060218
  Serious: Yes (Hospitalization)
  Sender: FDA-Public Use
  Company Number: BEWYE550101APR05

PATIENT
  Sex: Male

DRUGS (2)
  1. ENBREL [Suspect]
     Indication: RHEUMATOID ARTHRITIS
     Route: 058
     Dates: start: 20030722, end: 20031113
  2. NAPROXEN [Concomitant]

REACTIONS (5)
  - CHOROIDITIS [None]
  - CUTANEOUS SARCOIDOSIS [None]
  - EYELID OEDEMA [None]
  - INJECTION SITE NODULE [None]
  - UVEITIS [None]
